FAERS Safety Report 5874192-1 (Version None)
Quarter: 2008Q3

REPORT INFORMATION
  Report Type: 
  Country: None (occurrence: None)
  Receive Date: 20080903
  Receipt Date: 20080819
  Transmission Date: 20090109
  Serious: Yes (Hospitalization)
  Sender: FDA-Public Use
  Company Number: 2008S1015289

PATIENT
  Age: 23 Year
  Sex: Female

DRUGS (7)
  1. DICLOFENAC SODIUM [Suspect]
     Indication: BACK PAIN
     Dosage: ORAL, RECTAL
  2. BUPIVACAINE [Suspect]
     Indication: BACK PAIN
  3. FENTANYL [Suspect]
     Indication: BACK PAIN
  4. MEPERIDINE HCL [Suspect]
     Indication: BACK PAIN
     Dosage: INTRAMUSCULAR
     Route: 030
  5. TRAMADOL HCL [Suspect]
     Indication: BACK PAIN
     Dosage: ORAL
     Route: 048
  6. ANALGESICS [Suspect]
     Indication: DRUG USE FOR UNKNOWN INDICATION
     Dosage: EPIDURAL
     Route: 008
  7. ACETAMINOPHEN AND CODEINE PHOSPHATE [Suspect]
     Indication: BACK PAIN
     Dosage: ORAL
     Route: 048

REACTIONS (5)
  - BACK PAIN [None]
  - DRUG EXPOSURE DURING PREGNANCY [None]
  - FALL [None]
  - PREMATURE RUPTURE OF MEMBRANES [None]
  - UTERINE CONTRACTIONS DURING PREGNANCY [None]
